FAERS Safety Report 8103884-9 (Version None)
Quarter: 2012Q1

REPORT INFORMATION
  Report Type: 
  Country: None (occurrence: None)
  Receive Date: 20120201
  Receipt Date: 20120126
  Transmission Date: 20120608
  Serious: Yes (Hospitalization)
  Sender: FDA-Public Use
  Company Number: ES-PFIZER INC-2012021579

PATIENT
  Age: 67 Year
  Sex: Female

DRUGS (3)
  1. FORTECORTIN [Concomitant]
  2. DEPAKENE [Concomitant]
     Dosage: UNK
  3. SUTENT [Suspect]
     Indication: RENAL CANCER STAGE IV
     Dosage: 50 MG, 1X/DAY
     Route: 048
     Dates: start: 20110810, end: 20110921

REACTIONS (4)
  - SKIN EXFOLIATION [None]
  - THROMBOCYTOPENIA [None]
  - RASH [None]
  - GASTROINTESTINAL DISORDER [None]
